FAERS Safety Report 8010067-X (Version None)
Quarter: 2011Q4

REPORT INFORMATION
  Report Type: 
  Country: None (occurrence: None)
  Receive Date: 20111228
  Receipt Date: 20111216
  Transmission Date: 20120403
  Serious: Yes (Hospitalization)
  Sender: FDA-Public Use
  Company Number: NL-BRISTOL-MYERS SQUIBB COMPANY-16300949

PATIENT
  Sex: Female

DRUGS (2)
  1. IRBESARTAN + HYDROCHLOROTHIAZIDE [Suspect]
     Indication: CEREBROVASCULAR ACCIDENT
     Dosage: 1 DF=300/12.5MG.START DT(2004-ONGNG.
     Route: 048
     Dates: start: 20040101
  2. ASCAL [Suspect]
     Route: 048

REACTIONS (3)
  - PYREXIA [None]
  - VOMITING [None]
  - HYPERCALCAEMIA [None]
